FAERS Safety Report 5194800-0 (Version None)
Quarter: 2006Q4

REPORT INFORMATION
  Report Type: 
  Country: None (occurrence: None)
  Receive Date: 20061229
  Receipt Date: 20061220
  Transmission Date: 20070319
  Serious: Yes (Hospitalization)
  Sender: FDA-Public Use
  Company Number: MX-SANOFI-SYNTHELABO-A01200611045

PATIENT
  Sex: Male
  Weight: 110 kg

DRUGS (2)
  1. TOLTERODINE [Suspect]
     Indication: HYPERTONIC BLADDER
     Route: 048
     Dates: start: 20060829, end: 20060904
  2. UROXATRAL [Suspect]
     Indication: HYPERTONIC BLADDER
     Route: 048
     Dates: start: 20000303

REACTIONS (3)
  - DISEASE RECURRENCE [None]
  - REFUSAL OF TREATMENT BY PATIENT [None]
  - URINARY RETENTION [None]
